FAERS Safety Report 8208071-1 (Version None)
Quarter: 2012Q1

REPORT INFORMATION
  Report Type: 
  Country: None (occurrence: None)
  Receive Date: 20120314
  Receipt Date: 20120305
  Transmission Date: 20120608
  Serious: Yes (Other)
  Sender: FDA-Public Use
  Company Number: PHHY2012CA018113

PATIENT
  Sex: Female

DRUGS (1)
  1. ZOMETA [Suspect]
     Indication: BREAST CANCER
     Dosage: 4 MG, QW4
     Route: 042
     Dates: start: 20120227

REACTIONS (7)
  - ARTHRALGIA [None]
  - VISION BLURRED [None]
  - FATIGUE [None]
  - SYNCOPE [None]
  - URINE OUTPUT INCREASED [None]
  - MYALGIA [None]
  - ARTHRITIS [None]
